FAERS Safety Report 26116701 (Version 2)
Quarter: 2025Q4

REPORT INFORMATION
  Report Type: Report from Study
  Country: CA (occurrence: CA)
  Receive Date: 20251203
  Receipt Date: 20251219
  Transmission Date: 20260117
  Serious: Yes (Other)
  Sender: NOVARTIS
  Company Number: CA-002147023-NVSC2025CA185094

PATIENT
  Age: 47 Year
  Sex: Male

DRUGS (1)
  1. MAYZENT [Suspect]
     Active Substance: SIPONIMOD
     Indication: Secondary progressive multiple sclerosis
     Dosage: 2 MG, QD
     Route: 048

REACTIONS (3)
  - Cerebellar stroke [Recovering/Resolving]
  - Hemiparesis [Recovering/Resolving]
  - Vertebral artery thrombosis [Recovering/Resolving]
